FAERS Safety Report 6028199-4 (Version None)
Quarter: 2009Q1

REPORT INFORMATION
  Report Type: 
  Country: None (occurrence: None)
  Receive Date: 20090106
  Receipt Date: 20081230
  Transmission Date: 20090719
  Serious: Yes (Hospitalization)
  Sender: FDA-Public Use
  Company Number: US-JNJFOC-20090100080

PATIENT
  Sex: Female

DRUGS (1)
  1. TRAMADOL HCL [Suspect]
     Indication: DRUG USE FOR UNKNOWN INDICATION
     Route: 048

REACTIONS (4)
  - DIZZINESS [None]
  - HYPERHIDROSIS [None]
  - HYPERTENSION [None]
  - NAUSEA [None]
